FAERS Safety Report 7646794-3 (Version None)
Quarter: 2011Q3

REPORT INFORMATION
  Report Type: 
  Country: None (occurrence: None)
  Receive Date: 20110801
  Receipt Date: 20110727
  Transmission Date: 20111222
  Serious: No
  Sender: FDA-Public Use
  Company Number: TR-SANOFI-AVENTIS-2010SA057350

PATIENT
  Age: 33 Year
  Sex: Female
  Weight: 78 kg

DRUGS (1)
  1. ARAVA [Suspect]
     Indication: RHEUMATOID ARTHRITIS
     Route: 048
     Dates: start: 20080101, end: 20100901

REACTIONS (1)
  - MATERNAL EXPOSURE DURING PREGNANCY [None]
